FAERS Safety Report 7323108-X (Version None)
Quarter: 2011Q1

REPORT INFORMATION
  Report Type: 
  Country: None (occurrence: None)
  Receive Date: 20110301
  Receipt Date: 20100908
  Transmission Date: 20110831
  Serious: Yes (Other)
  Sender: FDA-Public Use
  Company Number: US-BAYER-200940978NA

PATIENT
  Sex: Female
  Weight: 94.331 kg

DRUGS (7)
  1. LORTAB [Concomitant]
  2. UNCODEABLE ^UNCLASSIFIABLE^ [Concomitant]
     Dosage: UNK
     Route: 048
     Dates: start: 20090416
  3. YAZ [Suspect]
     Indication: ORAL CONTRACEPTION
     Dosage: 1 DF (DAILY DOSE), QD, ORAL
     Route: 048
     Dates: start: 20090312, end: 20090501
  4. PRENATAL VITAMINS [Concomitant]
     Dosage: UNK
     Dates: end: 20090422
  5. OXYCODONE HCL AND ACETAMINOPHEN [Concomitant]
     Dosage: UNK
     Route: 048
     Dates: start: 20090422
  6. PERCOCET [Concomitant]
     Dosage: UNK
     Dates: end: 20090422
  7. IBUPROFEN [Concomitant]
     Dosage: UNK
     Dates: end: 20090422

REACTIONS (9)
  - CHOLECYSTITIS CHRONIC [None]
  - CHOLELITHIASIS [None]
  - BILIARY COLIC [None]
  - DIARRHOEA [None]
  - ABDOMINAL PAIN UPPER [None]
  - ABDOMINAL PAIN [None]
  - VOMITING [None]
  - HEPATIC ENZYME ABNORMAL [None]
  - MOOD ALTERED [None]
